FAERS Safety Report 19377336 (Version 2)
Quarter: 2022Q4

REPORT INFORMATION
  Report Type: Spontaneous
  Country: FR (occurrence: FR)
  Receive Date: 20210604
  Receipt Date: 20221031
  Transmission Date: 20230112
  Serious: Yes (Hospitalization)
  Sender: FDA-Public Use
  Company Number: None

PATIENT
  Age: 62 Year
  Sex: Male
  Weight: 103 kg

DRUGS (6)
  1. PIPERACILLIN AND TAZOBACTAM [Suspect]
     Active Substance: PIPERACILLIN SODIUM\TAZOBACTAM SODIUM
     Indication: Pneumonia
     Dosage: 4 GRAM, Q8H
     Route: 042
     Dates: start: 20200923, end: 20200924
  2. CEFEPIME HYDROCHLORIDE [Suspect]
     Active Substance: CEFEPIME HYDROCHLORIDE
     Indication: Pneumonia
     Dosage: 2 GRAM, BID
     Route: 042
     Dates: start: 20200925, end: 20200930
  3. CEFEPIME HYDROCHLORIDE [Suspect]
     Active Substance: CEFEPIME HYDROCHLORIDE
     Dosage: 2 GRAM, BID
     Route: 042
     Dates: start: 20201002, end: 20201004
  4. LINEZOLID [Suspect]
     Active Substance: LINEZOLID
     Indication: Pneumonia
     Dosage: 600 MILLIGRAM, BID
     Route: 042
     Dates: start: 20200924, end: 20200925
  5. LINEZOLID [Suspect]
     Active Substance: LINEZOLID
     Indication: Vascular device infection
     Dosage: 600 MILLIGRAM, BID
     Route: 042
     Dates: start: 20201001, end: 20201001
  6. LINEZOLID [Suspect]
     Active Substance: LINEZOLID
     Dosage: 600 MILLIGRAM, BID
     Route: 042
     Dates: start: 20201115, end: 20201116

REACTIONS (4)
  - Hepatic cytolysis [Not Recovered/Not Resolved]
  - Rash maculo-papular [Recovered/Resolved]
  - Jaundice cholestatic [Not Recovered/Not Resolved]
  - Acute kidney injury [Not Recovered/Not Resolved]

NARRATIVE: CASE EVENT DATE: 20201011
